FAERS Safety Report 21958996 (Version 6)
Quarter: 2023Q2

REPORT INFORMATION
  Report Type: Spontaneous
  Country: US (occurrence: US)
  Receive Date: 20230206
  Receipt Date: 20230510
  Transmission Date: 20230722
  Serious: No
  Sender: FDA-Public Use
  Company Number: US-PFIZER INC-PV202300022253

PATIENT
  Age: 71 Year
  Sex: Female

DRUGS (1)
  1. IBRANCE [Suspect]
     Active Substance: PALBOCICLIB
     Indication: Inflammatory carcinoma of the breast
     Dosage: 100 MG, DAILY (ONCE EVERY DAY UNTIL IT RUNS OUT BY MOUTH)
     Route: 048
     Dates: start: 202204

REACTIONS (1)
  - Neoplasm recurrence [Unknown]
